FAERS Safety Report 4510008-3 (Version None)
Quarter: 2004Q4

REPORT INFORMATION
  Report Type: 
  Country: None (occurrence: None)
  Receive Date: 20041124
  Receipt Date: 20041116
  Transmission Date: 20050328
  Serious: Yes (Hospitalization)
  Sender: FDA-Public Use
  Company Number: AR-ABBOTT-04P-007-0281018-00

PATIENT
  Sex: Male

DRUGS (3)
  1. SEVORANE LIQUID FOR INHALATION [Suspect]
     Indication: ANAESTHESIA
     Route: 055
     Dates: start: 20041110, end: 20041110
  2. OXYGEN [Concomitant]
     Indication: OXYGEN SUPPLEMENTATION
     Route: 055
     Dates: start: 20041110, end: 20041110
  3. LIDOCAINE [Concomitant]
     Indication: LOCAL ANAESTHESIA
     Route: 061
     Dates: start: 20041110, end: 20041110

REACTIONS (1)
  - BURNS FIRST DEGREE [None]
